FAERS Safety Report 5172370-0 (Version None)
Quarter: 2006Q4

REPORT INFORMATION
  Report Type: 
  Country: None (occurrence: None)
  Receive Date: 20061213
  Receipt Date: 20061129
  Transmission Date: 20070319
  Serious: Yes (Other)
  Sender: FDA-Public Use
  Company Number: GB-MERCK-0611GBR00169

PATIENT
  Sex: Female
  Weight: 60 kg

DRUGS (2)
  1. ZOCOR [Suspect]
     Indication: TYPE IIA HYPERLIPIDAEMIA
     Route: 048
     Dates: start: 20060905, end: 20061008
  2. TOLTERODINE TARTRATE [Concomitant]
     Indication: HAEMATURIA
     Route: 048
     Dates: start: 20060617

REACTIONS (3)
  - LETHARGY [None]
  - MALAISE [None]
  - MYALGIA [None]
